FAERS Safety Report 8920133 (Version 2)
Quarter: 2012Q4

REPORT INFORMATION
  Report Type: 
  Country: US (occurrence: US)
  Receive Date: 20121121
  Receipt Date: 20121221
  Transmission Date: 20130627
  Serious: Yes (Other)
  Sender: FDA-Public Use
  Company Number: US-PFIZER INC-2012289517

PATIENT
  Age: 22 Year
  Sex: Male

DRUGS (2)
  1. GEODON [Suspect]
     Indication: SCHIZOPHRENIA
     Dosage: 80 mg, UNK
     Dates: start: 201208, end: 20121030
  2. GEODON [Suspect]
     Dosage: 120 mg, UNK
     Dates: start: 20121031

REACTIONS (1)
  - Hallucination, auditory [Recovered/Resolved]
